FAERS Safety Report 6463596-4 (Version None)
Quarter: 2009Q4

REPORT INFORMATION
  Report Type: 
  Country: None (occurrence: None)
  Receive Date: 20091201
  Receipt Date: 20091119
  Transmission Date: 20100525
  Serious: Yes (Disabling, Other)
  Sender: FDA-Public Use
  Company Number: GBWYE260419JAN07

PATIENT
  Age: 37 Year
  Sex: Male
  Weight: 65 kg

DRUGS (5)
  1. EFFEXOR XR [Suspect]
     Indication: ANXIETY
     Route: 048
     Dates: start: 20060101, end: 20070101
  2. EFFEXOR XR [Suspect]
     Indication: DEPRESSION
     Route: 048
     Dates: start: 20070101, end: 20070101
  3. EFFEXOR XR [Suspect]
     Route: 048
     Dates: start: 20070101
  4. DULOXETINE HYDROCHLORIDE [Concomitant]
     Indication: DEPRESSION
     Dosage: UNKNOWN
     Route: 048
  5. DULOXETINE HYDROCHLORIDE [Concomitant]
     Indication: ANXIETY

REACTIONS (2)
  - DELIRIUM TREMENS [None]
  - PERSECUTORY DELUSION [None]
